FAERS Safety Report 7094804-7 (Version None)
Quarter: 2010Q4

REPORT INFORMATION
  Report Type: 
  Country: None (occurrence: None)
  Receive Date: 20101110
  Receipt Date: 20101103
  Transmission Date: 20110411
  Serious: Yes (Hospitalization)
  Sender: FDA-Public Use
  Company Number: PL-AMGEN-POLSP2010002079

PATIENT

DRUGS (3)
  1. ENBREL [Suspect]
     Dosage: UNKNOWN
  2. ENBREL [Suspect]
     Route: 058
     Dates: start: 20090828, end: 20100601
  3. METHOTREXATE [Suspect]
     Dosage: UNKNOWN
     Route: 048
     Dates: end: 20100601

REACTIONS (1)
  - PERONEAL NERVE PALSY [None]
